FAERS Safety Report 6282760-0 (Version None)
Quarter: 2009Q3

REPORT INFORMATION
  Report Type: 
  Country: None (occurrence: None)
  Receive Date: 20090722
  Receipt Date: 20090722
  Transmission Date: 20100115
  Serious: Yes (Hospitalization)
  Sender: FDA-Public Use
  Company Number: None

PATIENT
  Age: 60 Year
  Sex: Male
  Weight: 72.1 kg

DRUGS (2)
  1. WARFARIN SODIUM [Suspect]
     Indication: HEART VALVE REPLACEMENT
     Dosage: 5 MG EVERY DAY PO
     Route: 048
     Dates: start: 20071018
  2. TRAMADOL HCL [Suspect]
     Indication: PAIN
     Dosage: 50-100 MG TID PO
     Route: 048
     Dates: start: 20090624, end: 20090717

REACTIONS (2)
  - ECCHYMOSIS [None]
  - INTERNATIONAL NORMALISED RATIO [None]
